FAERS Safety Report 4752212-5 (Version None)
Quarter: 2005Q3

REPORT INFORMATION
  Report Type: 
  Country: None (occurrence: None)
  Receive Date: 20050824
  Receipt Date: 20050819
  Transmission Date: 20060218
  Serious: Yes (Hospitalization)
  Sender: FDA-Public Use
  Company Number: DL2005323

PATIENT
  Age: 24 Year
  Sex: Female

DRUGS (2)
  1. MIFEPRISTONE TABLETS, 200 MG (DANCO LABS) [Suspect]
     Indication: ABORTION INDUCED
     Dosage: 200 MG, ORAL
     Route: 048
     Dates: start: 20050812
  2. MISOPROSTOL [Suspect]
     Dosage: 200 MG, ORAL
     Route: 048
     Dates: start: 20050814

REACTIONS (6)
  - ADNEXA UTERI MASS [None]
  - HAEMATOCRIT DECREASED [None]
  - MALAISE [None]
  - RUPTURED ECTOPIC PREGNANCY [None]
  - SYNCOPE [None]
  - WHITE BLOOD CELL COUNT INCREASED [None]
